FAERS Safety Report 7680619-5 (Version None)
Quarter: 2011Q3

REPORT INFORMATION
  Report Type: 
  Country: None (occurrence: None)
  Receive Date: 20110811
  Receipt Date: 20110811
  Transmission Date: 20111222
  Serious: Yes (Other)
  Sender: FDA-Public Use
  Company Number: None

PATIENT
  Age: 70 Year
  Sex: Female

DRUGS (15)
  1. LETAIRIS [Suspect]
     Indication: PULMONARY HYPERTENSION
     Dosage: 5 MG DAILY ORALLY
     Route: 048
     Dates: start: 20110401, end: 20110701
  2. SUCRALFATE [Concomitant]
  3. OMEPRAZOLE [Concomitant]
  4. M.V.I. [Concomitant]
  5. ATENOLOL [Concomitant]
  6. ASMANEX TWISTHALER [Concomitant]
  7. SPRIRONOLACTONE [Concomitant]
  8. ASPIRIN [Concomitant]
  9. IPRATROPIUM BROMIDE [Concomitant]
  10. WARFARIN SODIUM [Concomitant]
  11. VYTORIN [Concomitant]
  12. FUROSEMIDE [Concomitant]
  13. CARISOPRODOL [Concomitant]
  14. LETAIRIS [Suspect]
     Dosage: 10 MG DAILY ORALLY
     Route: 048
  15. HYDROCODONE BITARTRATE AND ACETAMINOPHEN [Concomitant]

REACTIONS (4)
  - HEADACHE [None]
  - CONSTIPATION [None]
  - INSOMNIA [None]
  - URINARY RETENTION [None]
